FAERS Safety Report 12918355 (Version 1)
Quarter: 2016Q4

REPORT INFORMATION
  Report Type: Spontaneous
  Country: IL (occurrence: IL)
  Receive Date: 20161107
  Receipt Date: 20161107
  Transmission Date: 20170207
  Serious: Yes (Other)
  Sender: FDA-Public Use
  Company Number: IL-FRESENIUS KABI-FK201608484

PATIENT
  Age: 2 Day
  Sex: Male

DRUGS (2)
  1. AZITHROMYCIN (MANUFACTURER UNKNOWN) [Suspect]
     Active Substance: AZITHROMYCIN ANHYDROUS
     Indication: UPPER RESPIRATORY TRACT INFECTION
     Route: 064
  2. PENICILLIN G [Concomitant]
     Active Substance: PENICILLIN G
     Indication: AMNIOTIC CAVITY INFECTION
     Route: 064

REACTIONS (3)
  - Respiratory distress [Recovered/Resolved]
  - Maternal drugs affecting foetus [Recovered/Resolved]
  - Pyloric stenosis [Recovered/Resolved]
